FAERS Safety Report 8990509 (Version 1)
Quarter: 2012Q4

REPORT INFORMATION
  Report Type: 
  Country: NL (occurrence: NL)
  Receive Date: 20121228
  Receipt Date: 20121228
  Transmission Date: 20130627
  Serious: Yes (Hospitalization, Other)
  Sender: FDA-Public Use
  Company Number: NL-PFIZER INC-2006026586

PATIENT
  Age: 16 Year
  Sex: Male

DRUGS (3)
  1. IBUPROFEN [Suspect]
     Indication: COMMOTIO CEREBRI
     Dosage: 500 mg, 3 in 1 day for 2 days
     Route: 054
  2. IBUPROFEN [Suspect]
     Indication: JAW FRACTURE
     Dosage: 400 mg, 3 in 1 day for 3 days
     Route: 048
  3. AMOXICILLIN [Suspect]
     Indication: PRODUCT USED FOR UNKNOWN INDICATION
     Dosage: 500 mg, 3 in 1 day for 3 days
     Route: 048

REACTIONS (4)
  - Drug interaction [Recovered/Resolved]
  - Haemolytic anaemia [Recovered/Resolved]
  - Thrombocytopenia [Recovered/Resolved]
  - Enterocolitis haemorrhagic [Recovered/Resolved]
